FAERS Safety Report 6473420-1 (Version None)
Quarter: 2009Q4

REPORT INFORMATION
  Report Type: 
  Country: None (occurrence: None)
  Receive Date: 20091204
  Receipt Date: 20090209
  Transmission Date: 20100525
  Serious: Yes (Death, Hospitalization, Disabling, Other)
  Sender: FDA-Public Use
  Company Number: GB-ELI_LILLY_AND_COMPANY-GB200811006342

PATIENT
  Age: 35 Year
  Sex: Female
  Weight: 115 kg

DRUGS (8)
  1. GEMZAR [Suspect]
     Indication: ADENOCARCINOMA
     Dosage: UNK, UNKNOWN
     Route: 065
  2. CARBOPLATIN [Concomitant]
     Indication: ADENOCARCINOMA
     Dosage: UNK, UNKNOWN
     Route: 065
  3. TARCEVA [Concomitant]
     Indication: ADENOCARCINOMA
     Dosage: 50 MG, DAILY (1/D)
     Route: 048
     Dates: start: 20081015
  4. TARCEVA [Concomitant]
     Dosage: UNK, UNKNOWN
     Route: 065
  5. TAXOTERE [Concomitant]
     Indication: ADENOCARCINOMA
     Dosage: UNK, UNKNOWN
     Route: 065
  6. DEXAMETHASONE TAB [Concomitant]
     Dosage: 2 MG, DAILY (1/D)
     Route: 048
  7. KEPPRA [Concomitant]
     Dosage: 1.5 G, 2/D
     Route: 048
     Dates: start: 20080401
  8. VALPROATE SODIUM [Concomitant]
     Dosage: 900 MG, 2/D
     Route: 048
     Dates: start: 20080401

REACTIONS (4)
  - BILE DUCT CANCER [None]
  - CONVULSION [None]
  - DISEASE PROGRESSION [None]
  - DRUG INEFFECTIVE [None]
